FAERS Safety Report 4633798-8 (Version None)
Quarter: 2005Q2

REPORT INFORMATION
  Report Type: 
  Country: None (occurrence: None)
  Receive Date: 20050412
  Receipt Date: 20050412
  Transmission Date: 20051028
  Serious: Yes (Hospitalization)
  Sender: FDA-Public Use
  Company Number: None

PATIENT
  Sex: Female

DRUGS (1)
  1. ALIMTA [Suspect]
     Indication: THYMOMA
     Dosage: 500 MG/M2 Q21 IV
     Route: 042
     Dates: start: 20050222, end: 20050315

REACTIONS (4)
  - FALL [None]
  - GAIT DISTURBANCE [None]
  - INCONTINENCE [None]
  - MENTAL STATUS CHANGES [None]
